FAERS Safety Report 7437209-9 (Version None)
Quarter: 2011Q2

REPORT INFORMATION
  Report Type: 
  Country: None (occurrence: None)
  Receive Date: 20110426
  Receipt Date: 20110415
  Transmission Date: 20111010
  Serious: Yes (Life-Threatening)
  Sender: FDA-Public Use
  Company Number: JP-BRISTOL-MYERS SQUIBB COMPANY-15101538

PATIENT
  Age: 57 Year
  Sex: Male
  Weight: 60 kg

DRUGS (1)
  1. MAXIPIME [Suspect]
     Indication: SEPSIS
     Route: 041
     Dates: start: 20100509, end: 20100509

REACTIONS (1)
  - HYPOTENSION [None]
